FAERS Safety Report 5807960-2 (Version None)
Quarter: 2008Q3

REPORT INFORMATION
  Report Type: 
  Country: None (occurrence: None)
  Receive Date: 20080711
  Receipt Date: 20080630
  Transmission Date: 20090109
  Serious: Yes (Hospitalization, Other)
  Sender: FDA-Public Use
  Company Number: US-PFIZER INC-2008054523

PATIENT
  Sex: Male
  Weight: 105.9 kg

DRUGS (4)
  1. VIAGRA [Suspect]
     Indication: ERECTILE DYSFUNCTION
  2. GABAPENTIN [Suspect]
  3. LANTUS [Concomitant]
  4. HUMALOG [Concomitant]

REACTIONS (8)
  - BACK PAIN [None]
  - CHONDROPATHY [None]
  - FATIGUE [None]
  - HEART RATE INCREASED [None]
  - HOT FLUSH [None]
  - SINUS HEADACHE [None]
  - STAPHYLOCOCCAL INFECTION [None]
  - WEIGHT INCREASED [None]
